FAERS Safety Report 5162709-4 (Version None)
Quarter: 2006Q4

REPORT INFORMATION
  Report Type: 
  Country: None (occurrence: None)
  Receive Date: 20061201
  Receipt Date: 20060825
  Transmission Date: 20070319
  Serious: No
  Sender: FDA-Public Use
  Company Number: TAP2006Q01393

PATIENT
  Age: 61 Year
  Sex: Female

DRUGS (2)
  1. AUGMENTIN '125' [Suspect]
     Indication: SINUSITIS
     Route: 048
     Dates: start: 20060804
  2. PREVACID [Suspect]
     Dosage: 30MG PER DAY
     Route: 048
     Dates: start: 20060804

REACTIONS (4)
  - EYE PAIN [None]
  - HEADACHE [None]
  - NAUSEA [None]
  - VISION BLURRED [None]
